FAERS Safety Report 6245012-0 (Version None)
Quarter: 2009Q2

REPORT INFORMATION
  Report Type: 
  Country: None (occurrence: None)
  Receive Date: 20090619
  Receipt Date: 20090120
  Transmission Date: 20091009
  Serious: Yes (Hospitalization)
  Sender: FDA-Public Use
  Company Number: 2009PL000090

PATIENT
  Age: 47 Year
  Sex: Female
  Weight: 72 kg

DRUGS (10)
  1. AZATHIOPRINE [Suspect]
     Indication: CROHN'S DISEASE
     Dosage: 150 MG;QD;PO
     Route: 048
     Dates: start: 20071023
  2. PLACEBO (PLACEBO) LYOPHILIZED POWDER (NO PREF. NAME) [Suspect]
     Indication: CROHN'S DISEASE
     Dosage: 321 MG;QD;IV
     Route: 042
     Dates: start: 20071023
  3. CALCI CHEW /00108001/ [Concomitant]
  4. MAGNESIUM OXIDE [Concomitant]
  5. COMBIVENT /01261001/ [Concomitant]
  6. OMEPRAZOLE [Concomitant]
  7. TAVEGIL /00137201/ [Concomitant]
  8. BUDESONIDE [Concomitant]
  9. SYMBICORT [Concomitant]
  10. HYDROCORTISONE [Concomitant]

REACTIONS (1)
  - PANCREATITIS [None]
